FAERS Safety Report 8193859-6 (Version None)
Quarter: 2012Q1

REPORT INFORMATION
  Report Type: 
  Country: None (occurrence: None)
  Receive Date: 20120308
  Receipt Date: 20120227
  Transmission Date: 20120608
  Serious: Yes (Hospitalization)
  Sender: FDA-Public Use
  Company Number: US-ELI_LILLY_AND_COMPANY-US201202007931

PATIENT
  Sex: Female

DRUGS (14)
  1. MILK OF MAGNESIA TAB [Concomitant]
  2. POTASSIUM CHLORIDE [Concomitant]
  3. SINGULAIR [Concomitant]
     Dosage: UNK
     Dates: end: 20120219
  4. LYRICA [Concomitant]
     Dosage: UNK
     Dates: end: 20120219
  5. MIRAPEX [Concomitant]
  6. CARAFATE [Concomitant]
  7. MS CONTIN [Concomitant]
  8. XYZAL [Concomitant]
  9. FAMCICLOVIR [Concomitant]
  10. LEXAPRO [Concomitant]
  11. NEXIUM [Concomitant]
     Dosage: UNK
     Dates: end: 20120219
  12. FORTEO [Suspect]
     Dosage: UNK, UNK
     Dates: start: 20110520
  13. CELEBREX [Concomitant]
     Dosage: UNK
     Dates: end: 20120219
  14. ADVAIR DISKUS 100/50 [Concomitant]

REACTIONS (14)
  - EYE DISORDER [None]
  - ABDOMINAL PAIN UPPER [None]
  - FATIGUE [None]
  - ARTHRALGIA [None]
  - KERATITIS [None]
  - EYE DISCHARGE [None]
  - DIZZINESS [None]
  - DIARRHOEA [None]
  - PAIN [None]
  - RETCHING [None]
  - MALAISE [None]
  - VOMITING [None]
  - NAUSEA [None]
  - VISUAL IMPAIRMENT [None]
